FAERS Safety Report 10163996 (Version 1)
Quarter: 2014Q2

REPORT INFORMATION
  Report Type: Spontaneous
  Country: US (occurrence: US)
  Receive Date: 20140510
  Receipt Date: 20140510
  Transmission Date: 20141212
  Serious: No
  Sender: FDA-Public Use
  Company Number: US-BRISTOL-MYERS SQUIBB COMPANY-19790344

PATIENT
  Age: 46 Year
  Sex: Male
  Weight: 174.6 kg

DRUGS (3)
  1. BYETTA [Suspect]
     Route: 058
  2. LANTUS [Suspect]
  3. HUMULIN [Suspect]

REACTIONS (1)
  - Dysgeusia [Recovered/Resolved]
